FAERS Safety Report 5637800-6 (Version None)
Quarter: 2008Q1

REPORT INFORMATION
  Report Type: 
  Country: None (occurrence: None)
  Receive Date: 20080220
  Receipt Date: 20080212
  Transmission Date: 20080703
  Serious: Yes (Other)
  Sender: FDA-Public Use
  Company Number: 163-20785-08020683

PATIENT

DRUGS (2)
  1. THALOMID [Suspect]
     Indication: CARCINOID TUMOUR OF THE PANCREAS
     Dosage: 200 MG, DAILY, ORAL; 400 MG, DAILY, ORAL
     Route: 048
  2. THALOMID [Suspect]
     Indication: METASTATIC NEOPLASM
     Dosage: 200 MG, DAILY, ORAL; 400 MG, DAILY, ORAL
     Route: 048

REACTIONS (11)
  - CONSTIPATION [None]
  - CYSTITIS HAEMORRHAGIC [None]
  - DEEP VEIN THROMBOSIS [None]
  - DIZZINESS [None]
  - DRY MOUTH [None]
  - FATIGUE [None]
  - ORTHOSTATIC HYPOTENSION [None]
  - PERIPHERAL SENSORY NEUROPATHY [None]
  - SOMNOLENCE [None]
  - SYNCOPE [None]
  - WEIGHT INCREASED [None]
